FAERS Safety Report 14179785 (Version 2)
Quarter: 2017Q4

REPORT INFORMATION
  Report Type: Spontaneous
  Country: JP (occurrence: JP)
  Receive Date: 20171110
  Receipt Date: 20171207
  Transmission Date: 20180321
  Serious: Yes (Life-Threatening, Hospitalization, Other)
  Sender: FDA-Public Use
  Company Number: JP-JNJFOC-20171110484

PATIENT
  Age: 82 Year
  Sex: Female
  Weight: 49.4 kg

DRUGS (8)
  1. HALCION [Concomitant]
     Active Substance: TRIAZOLAM
     Indication: INSOMNIA
     Route: 048
     Dates: start: 20121213, end: 20171030
  2. MOHRUS [Concomitant]
     Active Substance: KETOPROFEN
     Route: 062
     Dates: start: 20140605, end: 20171030
  3. XARELTO [Suspect]
     Active Substance: RIVAROXABAN
     Indication: ATRIAL FIBRILLATION
     Route: 048
     Dates: start: 20140921, end: 20171030
  4. PURSENNID [Concomitant]
     Active Substance: SENNOSIDES A AND B
     Indication: CONSTIPATION
     Route: 048
     Dates: start: 20130530, end: 20171030
  5. LIPITOR [Concomitant]
     Active Substance: ATORVASTATIN CALCIUM
     Indication: HYPERLIPIDAEMIA
     Route: 048
     Dates: start: 20130725, end: 20171030
  6. DEPAS [Concomitant]
     Active Substance: ETIZOLAM
     Indication: INSOMNIA
     Route: 048
     Dates: start: 20121213, end: 20171030
  7. XARELTO [Suspect]
     Active Substance: RIVAROXABAN
     Indication: CEREBRAL INFARCTION
     Route: 048
     Dates: start: 20140921, end: 20171030
  8. TAKEPRON [Concomitant]
     Active Substance: LANSOPRAZOLE
     Indication: ANTICOAGULANT THERAPY
     Route: 048
     Dates: start: 20040412, end: 20171030

REACTIONS (2)
  - Fall [Unknown]
  - Subarachnoid haematoma [Recovering/Resolving]

NARRATIVE: CASE EVENT DATE: 20171031
